FAERS Safety Report 8606223-X (Version None)
Quarter: 2012Q3

REPORT INFORMATION
  Report Type: 
  Country: None (occurrence: None)
  Receive Date: 20120820
  Receipt Date: 19910610
  Transmission Date: 20120928
  Serious: Yes (Other)
  Sender: FDA-Public Use
  Company Number: US-ROCHE-1101982

PATIENT
  Age: 61 Year
  Sex: Female

DRUGS (12)
  1. HEPARIN [Concomitant]
  2. LASIX [Concomitant]
     Route: 042
  3. LIDOCAINE [Concomitant]
     Route: 040
  4. PROPRANOLOL [Concomitant]
  5. LIDOCAINE [Concomitant]
  6. PAVABID [Concomitant]
  7. ASPIRIN [Concomitant]
  8. ACTIVASE [Suspect]
  9. MORPHINE [Concomitant]
     Route: 042
  10. ACTIVASE [Suspect]
     Indication: MYOCARDIAL INFARCTION
     Route: 042
  11. HEPARIN [Concomitant]
     Dosage: 7000 UNITS
     Route: 042
  12. OXYGEN [Concomitant]

REACTIONS (2)
  - CHEST DISCOMFORT [None]
  - EXTRASYSTOLES [None]
